FAERS Safety Report 20553139 (Version 1)
Quarter: 2022Q1

REPORT INFORMATION
  Report Type: Spontaneous
  Country: PT (occurrence: None)
  Receive Date: 20220304
  Receipt Date: 20220304
  Transmission Date: 20220423
  Serious: Yes (Hospitalization, Other)
  Sender: FDA-Public Use
  Company Number: PT-Fresenius Kabi-FK202202309

PATIENT
  Age: 47 Year
  Sex: Female

DRUGS (7)
  1. NOREPINEPHRINE BITARTRATE [Suspect]
     Active Substance: NOREPINEPHRINE BITARTRATE
     Indication: Hypotension
     Dosage: 0.5-1 UG/KG/MIN INFUSION
     Route: 065
  2. NOREPINEPHRINE BITARTRATE [Suspect]
     Active Substance: NOREPINEPHRINE BITARTRATE
     Indication: Haemodynamic instability
  3. REMIFENTANIL [Concomitant]
     Active Substance: REMIFENTANIL
     Indication: Anaesthesia
     Route: 065
  4. PHENYLEPHRINE [Concomitant]
     Active Substance: PHENYLEPHRINE HYDROCHLORIDE
     Indication: Hypotension
     Dosage: PHENYLEPHRINE BOLUS
     Route: 065
  5. PHENYLEPHRINE [Concomitant]
     Active Substance: PHENYLEPHRINE HYDROCHLORIDE
     Indication: Haemodynamic instability
  6. PROPOFOL [Concomitant]
     Active Substance: PROPOFOL
     Indication: Anaesthesia
     Route: 065
  7. ROCURONIUM BROMIDE [Concomitant]
     Active Substance: ROCURONIUM BROMIDE
     Indication: Anaesthesia
     Route: 065

REACTIONS (2)
  - Stress cardiomyopathy [Recovered/Resolved]
  - Drug ineffective [Unknown]
